FAERS Safety Report 5474805-2 (Version None)
Quarter: 2007Q4

REPORT INFORMATION
  Report Type: 
  Country: None (occurrence: None)
  Receive Date: 20071002
  Receipt Date: 20070921
  Transmission Date: 20080405
  Serious: Yes (Hospitalization)
  Sender: FDA-Public Use
  Company Number: B0489326A

PATIENT
  Age: 80 Year
  Sex: Female

DRUGS (6)
  1. AUGMENTIN '125' [Suspect]
     Dosage: 1G THREE TIMES PER DAY
     Route: 042
     Dates: start: 20070627, end: 20070630
  2. PRIMPERAN [Suspect]
     Dosage: 10MG PER DAY
     Route: 042
     Dates: start: 20070627, end: 20070630
  3. TRIFLUCAN [Suspect]
     Route: 048
     Dates: start: 20070627, end: 20070628
  4. INIPOMP [Suspect]
     Route: 048
     Dates: start: 20070627
  5. ISOPTIN [Suspect]
     Route: 048
     Dates: start: 20070629
  6. JOSIR [Suspect]
     Dosage: .4MG PER DAY
     Route: 048
     Dates: start: 20070628

REACTIONS (1)
  - HYPOKALAEMIA [None]
